FAERS Safety Report 5221977-0 (Version None)
Quarter: 2007Q1

REPORT INFORMATION
  Report Type: 
  Country: None (occurrence: None)
  Receive Date: 20070129
  Receipt Date: 20060223
  Transmission Date: 20070707
  Serious: Yes (Hospitalization)
  Sender: FDA-Public Use
  Company Number: US-GLAXOSMITHKLINE-A0594978A

PATIENT
  Sex: Female

DRUGS (27)
  1. BUPROPION HYDROCHLORIDE [Suspect]
     Indication: DEPRESSION
     Route: 048
  2. SOMA COMPOUND [Concomitant]
  3. BENADRYL [Concomitant]
  4. DURATUSS [Concomitant]
  5. PHENERGAN EXPECTORANT W/ CODEINE [Concomitant]
  6. NEXIUM [Concomitant]
  7. ALBUTEROL [Concomitant]
  8. FLONASE [Concomitant]
  9. ESTRACE [Concomitant]
  10. NITROSTAT [Concomitant]
  11. OS-CAL [Concomitant]
  12. POTASSIUM CHLORIDE [Concomitant]
  13. VITAMIN [Concomitant]
  14. LOMOTIL [Concomitant]
  15. SYNTHROID [Concomitant]
  16. ATIVAN [Concomitant]
  17. DALMANE [Concomitant]
  18. DOXEPIN HCL [Concomitant]
  19. CLOBETASOL PROPIONATE [Concomitant]
  20. NAFCON A [Concomitant]
  21. ALPHAGAN [Concomitant]
  22. VIGAMOX [Concomitant]
  23. CAPEX [Concomitant]
  24. QUITEX [Concomitant]
  25. UNSPECIFIED MEDICATION [Concomitant]
  26. VISINE EYE DROPS [Concomitant]
  27. NO TEARS EYE DROPS [Concomitant]

REACTIONS (2)
  - DRUG INEFFECTIVE [None]
  - THERAPEUTIC RESPONSE DECREASED [None]
